FAERS Safety Report 24356583 (Version 1)
Quarter: 2024Q3

REPORT INFORMATION
  Report Type: Spontaneous
  Country: US (occurrence: US)
  Receive Date: 20240924
  Receipt Date: 20240924
  Transmission Date: 20241017
  Serious: No
  Sender: Haleon PLC
  Company Number: US-HALEON-2197422

PATIENT
  Age: 58 Year
  Sex: Female

DRUGS (1)
  1. ABREVA [Suspect]
     Active Substance: DOCOSANOL
     Indication: Oral herpes
     Dosage: EXPIRATION DATE: 2025-09-30
     Dates: start: 20240813, end: 20240825

REACTIONS (1)
  - Drug ineffective [Unknown]
